FAERS Safety Report 10360979 (Version 1)
Quarter: 2014Q3

REPORT INFORMATION
  Report Type: Spontaneous
  Country: HR (occurrence: HR)
  Receive Date: 20140804
  Receipt Date: 20140804
  Transmission Date: 20150326
  Serious: Yes (Hospitalization, Other)
  Sender: FDA-Public Use
  Company Number: PHHY2014HR093385

PATIENT
  Age: 73 Year
  Sex: Female
  Weight: 80 kg

DRUGS (8)
  1. KOGREL [Concomitant]
     Dosage: 75 MG, QD
     Route: 048
  2. NORPREXANIL [Concomitant]
     Active Substance: UNSPECIFIED INGREDIENT
     Dosage: 1 DF, QD
  3. TERTENSIF [Concomitant]
     Dosage: 1.5 MG, QD
  4. TRIMETAZIDIN [Concomitant]
     Dosage: 35 MG, BID
  5. CONCOR COR [Concomitant]
     Active Substance: BISOPROLOL FUMARATE
     Dosage: 2.5 MG, QD
     Route: 048
  6. OLICARD [Concomitant]
     Dosage: 40 MG, QD
  7. ANASTROZOLE SANDOZ [Suspect]
     Active Substance: ANASTROZOLE
     Indication: BREAST CANCER
     Dosage: 1 MG, QD
     Route: 048
     Dates: start: 20140404, end: 20140516
  8. CARDIOPIRIN [Concomitant]
     Dosage: 100 MG, QD
     Route: 048
     Dates: start: 201401, end: 20140530

REACTIONS (5)
  - Bone pain [Recovered/Resolved]
  - Arthralgia [Recovered/Resolved]
  - Loss of consciousness [Recovered/Resolved]
  - Epistaxis [Recovered/Resolved]
  - Muscle spasms [Recovered/Resolved]

NARRATIVE: CASE EVENT DATE: 201404
